FAERS Safety Report 4536533-7 (Version None)
Quarter: 2004Q4

REPORT INFORMATION
  Report Type: 
  Country: None (occurrence: None)
  Receive Date: 20041222
  Receipt Date: 20041222
  Transmission Date: 20050328
  Serious: Yes (Hospitalization, Other)
  Sender: FDA-Public Use
  Company Number: None

PATIENT
  Sex: Female

DRUGS (4)
  1. CORRECTOL [Suspect]
     Dosage: ORAL
     Route: 048
  2. EX-LAX [Suspect]
  3. DULCOLAX [Suspect]
  4. SENOKOT [Suspect]

REACTIONS (6)
  - ANAEMIA [None]
  - DRUG DEPENDENCE [None]
  - GASTROINTESTINAL HAEMORRHAGE [None]
  - HAEMORRHOIDAL HAEMORRHAGE [None]
  - HAEMORRHOIDS [None]
  - RECTAL HAEMORRHAGE [None]
